FAERS Safety Report 10591992 (Version 1)
Quarter: 2014Q4

REPORT INFORMATION
  Report Type: Spontaneous
  Country: US (occurrence: US)
  Receive Date: 20141119
  Receipt Date: 20141119
  Transmission Date: 20150529
  Serious: Yes (Other)
  Sender: FDA-Public Use
  Company Number: US-JNJFOC-20141107784

PATIENT
  Sex: Female

DRUGS (1)
  1. TYLENOL SINUS CONGESTION AND PAIN SEVERE [Suspect]
     Active Substance: ACETAMINOPHEN\GUAIFENESIN\PHENYLEPHRINE HYDROCHLORIDE
     Indication: NASOPHARYNGITIS
     Dosage: 2 CAPLETS EVERY 4 TO 6 HOURS
     Route: 048
     Dates: start: 20141106, end: 20141106

REACTIONS (2)
  - VIIth nerve paralysis [Not Recovered/Not Resolved]
  - Paraesthesia oral [Not Recovered/Not Resolved]

NARRATIVE: CASE EVENT DATE: 20141106
